FAERS Safety Report 8772341 (Version 2)
Quarter: 2013Q4

REPORT INFORMATION
  Report Type: Spontaneous
  Country: US (occurrence: US)
  Receive Date: 20120906
  Receipt Date: 20131101
  Transmission Date: 20140711
  Serious: No
  Sender: FDA-Public Use
  Company Number: US-009507513-1209USA000675

PATIENT
  Age: 52 Year
  Sex: Male

DRUGS (1)
  1. SAPHRIS [Suspect]
     Indication: INSOMNIA
     Dosage: 5 MG, QD
     Route: 060
     Dates: start: 201204, end: 201204

REACTIONS (3)
  - Feeling of body temperature change [Not Recovered/Not Resolved]
  - Off label use [Unknown]
  - Underdose [Unknown]
